FAERS Safety Report 8585665 (Version 21)
Quarter: 2015Q4

REPORT INFORMATION
  Report Type: Spontaneous
  Country: US (occurrence: US)
  Receive Date: 20120530
  Receipt Date: 20151124
  Transmission Date: 20160305
  Serious: Yes (Life-Threatening, Hospitalization, Other)
  Sender: FDA-Public Use
  Company Number: US-GLAXOSMITHKLINE-A0966589A

PATIENT
  Age: 38 Year
  Sex: Female

DRUGS (18)
  1. TRACLEER [Concomitant]
     Active Substance: BOSENTAN
  2. FLOLAN [Suspect]
     Active Substance: EPOPROSTENOL SODIUM
     Indication: PULMONARY ARTERIAL HYPERTENSION
     Dosage: VIAL STRENGTH 1.5 MG82NG/KG/MINUTE AT 90,000NG/ML CONCENTRATION, WITH VIAL STRENGTH OF 1.5 MG, [...]
     Route: 042
     Dates: start: 20060603
  3. FLOLAN [Suspect]
     Active Substance: EPOPROSTENOL SODIUM
     Dosage: UNK
     Dates: start: 20060626
  4. FLOLAN [Suspect]
     Active Substance: EPOPROSTENOL SODIUM
     Dosage: UNK
     Dates: start: 20060626
  5. FLOLAN [Suspect]
     Active Substance: EPOPROSTENOL SODIUM
     Dosage: 84 NG/KG/MIN  (CONCENTRATION 90,000 NG/ML 83 ML/DAY, VIAL STRENGTH 1.5 MG), CO
     Route: 042
  6. LETAIRIS [Concomitant]
     Active Substance: AMBRISENTAN
  7. FLOLAN [Suspect]
     Active Substance: EPOPROSTENOL SODIUM
     Dosage: 85 NG/KG/MIN (CONCENTARION OF 90,000 NG PER ML PUMP AT A RATE OF 84 ML PER 24 HOUR, VIAL STRENGTH O)
  8. LASIX [Suspect]
     Active Substance: FUROSEMIDE
     Dosage: UNK, U
  9. FLOLAN [Suspect]
     Active Substance: EPOPROSTENOL SODIUM
     Dosage: 84 NG/KG/MIN
     Route: 042
  10. FLOLAN [Suspect]
     Active Substance: EPOPROSTENOL SODIUM
     Dosage: UNK
  11. FLOLAN [Suspect]
     Active Substance: EPOPROSTENOL SODIUM
     Dosage: 85 NG/KG/MINUNK
     Route: 042
  12. REVATIO [Concomitant]
     Active Substance: SILDENAFIL CITRATE
  13. PENICILLIN [Suspect]
     Active Substance: PENICILLIN
     Indication: PRODUCT USED FOR UNKNOWN INDICATION
     Dosage: UNKNOWN
     Route: 065
  14. COUMADIN [Concomitant]
     Active Substance: WARFARIN SODIUM
  15. AMBRISENTAN [Concomitant]
     Active Substance: AMBRISENTAN
  16. FLOLAN [Suspect]
     Active Substance: EPOPROSTENOL SODIUM
     Dosage: UNK
     Dates: start: 20060626
  17. FLOLAN [Suspect]
     Active Substance: EPOPROSTENOL SODIUM
     Dosage: 84 NG/KG/MIN
     Route: 042
  18. FLOLAN [Suspect]
     Active Substance: EPOPROSTENOL SODIUM
     Dosage: UNK
     Dates: start: 20060626

REACTIONS (15)
  - Infective tenosynovitis [Unknown]
  - Dizziness [Unknown]
  - Syncope [Unknown]
  - Dehydration [Unknown]
  - Drug hypersensitivity [Unknown]
  - Gastrostomy tube site complication [Unknown]
  - Sinusitis [Unknown]
  - Hospitalisation [Unknown]
  - Infection [Unknown]
  - Localised infection [Unknown]
  - Emergency care [Recovering/Resolving]
  - Device leakage [Unknown]
  - Abdominal pain [Unknown]
  - Sepsis [Recovered/Resolved]
  - Hot flush [Unknown]

NARRATIVE: CASE EVENT DATE: 20130405
